FAERS Safety Report 14076614 (Version 1)
Quarter: 2017Q4

REPORT INFORMATION
  Report Type: Spontaneous
  Country: US (occurrence: US)
  Receive Date: 20171011
  Receipt Date: 20171011
  Transmission Date: 20180321
  Serious: No
  Sender: FDA-Public Use
  Company Number: US-LUNDBECK-DKLU2037427

PATIENT
  Sex: Male

DRUGS (1)
  1. SABRIL [Suspect]
     Active Substance: VIGABATRIN
     Indication: EPILEPSY
     Route: 048
     Dates: start: 20170714

REACTIONS (5)
  - Peripheral swelling [Unknown]
  - Lethargy [Unknown]
  - Confusional state [Unknown]
  - Dizziness [Unknown]
  - Mood swings [Unknown]
